FAERS Safety Report 23306305 (Version 1)
Quarter: 2023Q4

REPORT INFORMATION
  Report Type: Spontaneous
  Country: FR (occurrence: FR)
  Receive Date: 20231218
  Receipt Date: 20231218
  Transmission Date: 20240109
  Serious: Yes (Hospitalization, Other)
  Sender: FDA-Public Use
  Company Number: None

PATIENT
  Age: 42 Year
  Sex: Male
  Weight: 92 kg

DRUGS (4)
  1. PYRAZINAMIDE [Suspect]
     Active Substance: PYRAZINAMIDE
     Indication: Tuberculosis of genitourinary system
     Dosage: 2000 MG, QD (IN THE MORNING)
     Route: 048
     Dates: start: 20231115
  2. RIFAMPIN [Suspect]
     Active Substance: RIFAMPIN
     Indication: Tuberculosis of genitourinary system
     Dosage: 300 MG, QD (IN THE MORNING)
     Route: 048
     Dates: start: 20231115
  3. ETHAMBUTOL [Suspect]
     Active Substance: ETHAMBUTOL HYDROCHLORIDE
     Indication: Tuberculosis of genitourinary system
     Dosage: 1500 MG, QD (IN THE MORNING)
     Route: 048
     Dates: start: 20231115
  4. ISONIAZID\RIFAMPIN [Suspect]
     Active Substance: ISONIAZID\RIFAMPIN
     Indication: Tuberculosis of genitourinary system
     Dosage: 2 DF, QD (IN THE MORNING)
     Route: 048
     Dates: start: 20231115

REACTIONS (1)
  - Cholestasis [Not Recovered/Not Resolved]

NARRATIVE: CASE EVENT DATE: 20231123
